FAERS Safety Report 9562572 (Version 4)
Quarter: 2013Q4

REPORT INFORMATION
  Report Type: Spontaneous
  Country: BR (occurrence: BR)
  Receive Date: 20130927
  Receipt Date: 20131018
  Transmission Date: 20140711
  Serious: Yes (Hospitalization, Other)
  Sender: FDA-Public Use
  Company Number: BR-ABBVIE-13X-020-1087842-00

PATIENT
  Age: 20 Year
  Sex: Female
  Weight: 70 kg

DRUGS (6)
  1. DEPAKENE [Suspect]
     Indication: EPILEPSY
     Dosage: MORNING/ AFTERNOON/ NIGHT: DAILY DOSE 1500 MG
     Dates: start: 1998
  2. DEPAKENE [Suspect]
     Dosage: 2 TABLETS IN THE MORNING/ 2 AT NIGHT
     Dates: end: 201304
  3. DEPAKENE [Suspect]
  4. HIDANTAL [Concomitant]
     Indication: EPILEPSY
     Route: 048
     Dates: start: 201303
  5. UNKNOWN MEDICATIONS [Concomitant]
     Indication: PRODUCT USED FOR UNKNOWN INDICATION
  6. UNKNOWN ANTIBIOTIC [Concomitant]
     Indication: PRODUCT USED FOR UNKNOWN INDICATION

REACTIONS (22)
  - Cardiac arrest [Unknown]
  - Epilepsy [Recovered/Resolved]
  - Epilepsy [Recovered/Resolved]
  - Pneumonia [Recovered/Resolved]
  - Dyspnoea [Not Recovered/Not Resolved]
  - Drug-induced liver injury [Not Recovered/Not Resolved]
  - Movement disorder [Not Recovered/Not Resolved]
  - Epilepsy [Not Recovered/Not Resolved]
  - Convulsion [Recovered/Resolved]
  - Weight decreased [Not Recovered/Not Resolved]
  - Vomiting [Not Recovered/Not Resolved]
  - Nausea [Not Recovered/Not Resolved]
  - Drug ineffective [Not Recovered/Not Resolved]
  - Headache [Not Recovered/Not Resolved]
  - Decreased appetite [Not Recovered/Not Resolved]
  - Hepatic neoplasm [Not Recovered/Not Resolved]
  - Pyrexia [Unknown]
  - Blood pressure increased [Unknown]
  - Bedridden [Unknown]
  - Pain [Not Recovered/Not Resolved]
  - Vomiting [Not Recovered/Not Resolved]
  - Pain in extremity [Not Recovered/Not Resolved]
